FAERS Safety Report 5398547-7 (Version None)
Quarter: 2007Q3

REPORT INFORMATION
  Report Type: 
  Country: None (occurrence: None)
  Receive Date: 20070726
  Receipt Date: 20060626
  Transmission Date: 20080115
  Serious: No
  Sender: FDA-Public Use
  Company Number: US-AMGEN-KDL184746

PATIENT
  Age: 83 Year
  Sex: Male

DRUGS (2)
  1. PROCRIT [Suspect]
     Indication: RENAL FAILURE CHRONIC
     Dates: start: 20050101
  2. COUMADIN [Concomitant]

REACTIONS (2)
  - BLOOD VISCOSITY INCREASED [None]
  - EPISTAXIS [None]
